FAERS Safety Report 7482636-7 (Version None)
Quarter: 2011Q2

REPORT INFORMATION
  Report Type: 
  Country: None (occurrence: None)
  Receive Date: 20110516
  Receipt Date: 20110502
  Transmission Date: 20111010
  Serious: Yes (Other)
  Sender: FDA-Public Use
  Company Number: PHHY2011US00726

PATIENT
  Sex: Male
  Weight: 70 kg

DRUGS (6)
  1. EXJADE [Suspect]
     Dosage: 1500 MG, QD
     Dates: start: 20101129, end: 20101221
  2. CYCLOSPORINE [Suspect]
     Indication: APLASTIC ANAEMIA
     Dosage: 125 MG, BID
     Route: 048
     Dates: start: 20100701
  3. NORVASC [Concomitant]
     Indication: HYPERTENSION
     Dosage: 10 MG
  4. FLUCONAZOLE [Concomitant]
     Dosage: 200 MG, QD
  5. NEXIUM [Concomitant]
     Dosage: 40 MG, QD
  6. ACYCLOVIR [Concomitant]
     Dosage: 400 MG, QD

REACTIONS (3)
  - RENAL DISORDER [None]
  - SERUM FERRITIN INCREASED [None]
  - BLOOD CREATININE INCREASED [None]
